FAERS Safety Report 12335460 (Version 1)
Quarter: 2016Q2

REPORT INFORMATION
  Report Type: Report from Study
  Country: US (occurrence: US)
  Receive Date: 20160504
  Receipt Date: 20160504
  Transmission Date: 20160815
  Serious: No
  Sender: FDA-Public Use
  Company Number: US-AMGEN-USASL2016056009

PATIENT
  Age: 74 Year
  Sex: Female

DRUGS (1)
  1. ENBREL [Suspect]
     Active Substance: ETANERCEPT
     Indication: RHEUMATOID ARTHRITIS
     Dosage: UNK
     Route: 065
     Dates: start: 200512

REACTIONS (6)
  - Wrist fracture [Unknown]
  - Malaise [Unknown]
  - Fall [Unknown]
  - Hypersensitivity [Unknown]
  - Urticaria [Unknown]
  - Viral infection [Unknown]

NARRATIVE: CASE EVENT DATE: 2015
